FAERS Safety Report 22110758 (Version 1)
Quarter: 2023Q1

REPORT INFORMATION
  Report Type: Spontaneous
  Country: US (occurrence: None)
  Receive Date: 20230317
  Receipt Date: 20230317
  Transmission Date: 20230418
  Serious: Yes (Other)
  Sender: FDA-Public Use
  Company Number: None

PATIENT
  Age: 56 Year
  Sex: Female
  Weight: 74.6 kg

DRUGS (1)
  1. DUPIXENT [Suspect]
     Active Substance: DUPILUMAB
     Indication: Sinusitis
     Dosage: OTHER FREQUENCY : ONCE;?
     Route: 058
     Dates: start: 20230316, end: 20230316

REACTIONS (7)
  - Middle insomnia [None]
  - Pruritus [None]
  - Urticaria [None]
  - Ocular hyperaemia [None]
  - Mydriasis [None]
  - Altered visual depth perception [None]
  - Swelling face [None]

NARRATIVE: CASE EVENT DATE: 20230316
